FAERS Safety Report 25153073 (Version 2)
Quarter: 2025Q2

REPORT INFORMATION
  Report Type: Spontaneous
  Country: AU (occurrence: AU)
  Receive Date: 20250403
  Receipt Date: 20250428
  Transmission Date: 20250717
  Serious: Yes (Other)
  Sender: CHEPLAPHARM
  Company Number: AU-CHEPLA-2025004156

PATIENT
  Age: 37 Year
  Sex: Female

DRUGS (7)
  1. OLANZAPINE [Interacting]
     Active Substance: OLANZAPINE
     Indication: Product used for unknown indication
  2. LURASIDONE HYDROCHLORIDE [Interacting]
     Active Substance: LURASIDONE HYDROCHLORIDE
     Indication: Product used for unknown indication
  3. LEVLEN [Interacting]
     Active Substance: ETHINYL ESTRADIOL\LEVONORGESTREL
     Indication: Product used for unknown indication
  4. CLOZAPINE [Interacting]
     Active Substance: CLOZAPINE
     Indication: Product used for unknown indication
  5. RISPERIDONE [Interacting]
     Active Substance: RISPERIDONE
     Indication: Product used for unknown indication
  6. Amoxycillin/ clavulanic acid [Concomitant]
  7. PALIPERIDONE [Concomitant]
     Active Substance: PALIPERIDONE

REACTIONS (5)
  - Myocarditis [Unknown]
  - Drug interaction [Unknown]
  - Extrapyramidal disorder [Unknown]
  - Mania [Unknown]
  - Treatment failure [Unknown]
